FAERS Safety Report 4349684-7 (Version None)
Quarter: 2004Q1

REPORT INFORMATION
  Report Type: 
  Country: None (occurrence: None)
  Receive Date: 20040329
  Receipt Date: 20031219
  Transmission Date: 20041129
  Serious: No
  Sender: FDA-Public Use
  Company Number: USA031255161

PATIENT
  Sex: Male
  Weight: 34 kg

DRUGS (3)
  1. STRATTERA [Suspect]
     Indication: ATTENTION DEFICIT/HYPERACTIVITY DISORDER
     Dosage: 60 MG/DAY
  2. PAXIL [Concomitant]
  3. CELEXA [Concomitant]

REACTIONS (2)
  - ANXIETY [None]
  - PRESCRIBED OVERDOSE [None]
